FAERS Safety Report 23626894 (Version 1)
Quarter: 2024Q1

REPORT INFORMATION
  Report Type: Spontaneous
  Country: US (occurrence: None)
  Receive Date: 20240312
  Receipt Date: 20240312
  Transmission Date: 20240410
  Serious: Yes (Life-Threatening, Hospitalization)
  Sender: FDA-Public Use
  Company Number: None

PATIENT
  Age: 72 Year
  Sex: Female
  Weight: 37.8 kg

DRUGS (2)
  1. RECLAST [Suspect]
     Active Substance: ZOLEDRONIC ACID
     Dates: start: 20240228
  2. RECLAST [Concomitant]
     Active Substance: ZOLEDRONIC ACID
     Dates: start: 20240228

REACTIONS (3)
  - Hypocalcaemia [None]
  - Blood phosphorus decreased [None]
  - Acute kidney injury [None]

NARRATIVE: CASE EVENT DATE: 20240301
